FAERS Safety Report 6134084-X (Version None)
Quarter: 2009Q1

REPORT INFORMATION
  Report Type: 
  Country: None (occurrence: None)
  Receive Date: 20090326
  Receipt Date: 20090326
  Transmission Date: 20090719
  Serious: Yes (Hospitalization)
  Sender: FDA-Public Use
  Company Number: PHHO2001BE07068

PATIENT
  Sex: Female
  Weight: 69 kg

DRUGS (6)
  1. CGS 20267 T30748+ [Suspect]
     Indication: BREAST CANCER
     Dosage: 2.5 MG, QD
     Route: 048
     Dates: start: 20010301
  2. CORDARONE [Concomitant]
  3. LASIX [Concomitant]
     Indication: HYPERTENSION
  4. MARCUMAR [Concomitant]
  5. ZESTRIL [Concomitant]
     Indication: HYPERTENSION
  6. ZYLORIC [Concomitant]
     Indication: GOUT

REACTIONS (5)
  - CARDIAC ARREST [None]
  - CHEST PAIN [None]
  - CORONARY ARTERY STENOSIS [None]
  - MITRAL VALVE INCOMPETENCE [None]
  - VENTRICULAR HYPOKINESIA [None]
